FAERS Safety Report 4816364-0 (Version None)
Quarter: 2005Q4

REPORT INFORMATION
  Report Type: 
  Country: None (occurrence: None)
  Receive Date: 20051018
  Receipt Date: 20051020
  Transmission Date: 20060501
  Serious: Yes (Other)
  Sender: FDA-Public Use
  Company Number: 2005145177

PATIENT
  Age: 27 Year
  Sex: Female

DRUGS (2)
  1. NORVASC [Suspect]
     Indication: HYPERTENSION
     Dosage: 2 MG (2.5 MG BID) ORAL
     Route: 048
     Dates: start: 20011005
  2. CARVEDILOL [Suspect]
     Dosage: 20 MG (10 MG BID) ORAL
     Route: 048
     Dates: start: 20051014

REACTIONS (3)
  - DRUG EXPOSURE DURING PREGNANCY [None]
  - NEPHROTIC SYNDROME [None]
  - PREGNANCY [None]
